FAERS Safety Report 6667419-X (Version None)
Quarter: 2010Q2

REPORT INFORMATION
  Report Type: 
  Country: None (occurrence: None)
  Receive Date: 20100405
  Receipt Date: 20100401
  Transmission Date: 20101027
  Serious: Yes (Life-Threatening, Other)
  Sender: FDA-Public Use
  Company Number: JP-ROCHE-665253

PATIENT
  Sex: Female

DRUGS (4)
  1. XELODA [Suspect]
     Indication: BREAST CANCER
     Dosage: NOTE: DOSAGE IS UNCERTAIN.
     Route: 048
     Dates: start: 20090222, end: 20090717
  2. XELODA [Suspect]
     Dosage: NOTE: DOSAGE IS UNCERTAIN.
     Route: 048
     Dates: start: 20100108, end: 20100330
  3. HERCEPTIN [Suspect]
     Indication: BREAST CANCER
     Route: 041
     Dates: start: 20070608, end: 20100330
  4. ELPLAT [Suspect]
     Indication: BREAST CANCER
     Dosage: NOTE: DOSAGE IS UNCERTAIN.
     Route: 041
     Dates: start: 20090401

REACTIONS (1)
  - INTERSTITIAL LUNG DISEASE [None]
